FAERS Safety Report 6942278-6 (Version None)
Quarter: 2010Q3

REPORT INFORMATION
  Report Type: 
  Country: None (occurrence: None)
  Receive Date: 20100823
  Receipt Date: 20100813
  Transmission Date: 20110219
  Serious: Yes (Hospitalization, Other)
  Sender: FDA-Public Use
  Company Number: 2010SP002316

PATIENT
  Age: 50 Year
  Sex: Female
  Weight: 65 kg

DRUGS (9)
  1. CICLESONIDE  HFA [Suspect]
     Indication: RHINITIS PERENNIAL
     Dosage: INHALATION
     Route: 055
     Dates: start: 20100513
  2. IMMUNOSUPPRESSIVE AGENTS [Concomitant]
  3. CALCIUM [Concomitant]
  4. VITAMIN E [Concomitant]
  5. NATURAL AND SEMISYNTHETIC ESTROGENS, PLAIN [Concomitant]
  6. IBUPROFEN [Concomitant]
  7. TYLENOL-500 [Concomitant]
  8. CYCLOBENZAPRINE [Concomitant]
  9. CLARITIN [Concomitant]

REACTIONS (5)
  - ENDOMETRIAL HYPERPLASIA [None]
  - MENORRHAGIA [None]
  - PRECANCEROUS CELLS PRESENT [None]
  - UTERINE ENLARGEMENT [None]
  - UTERINE POLYP [None]
